FAERS Safety Report 23400737 (Version 1)
Quarter: 2024Q1

REPORT INFORMATION
  Report Type: Spontaneous
  Country: US (occurrence: US)
  Receive Date: 20240115
  Receipt Date: 20240115
  Transmission Date: 20240410
  Serious: Yes (Other)
  Sender: FDA-Public Use
  Company Number: US-AMGEN-USASP2024003874

PATIENT
  Age: 80 Year
  Sex: Female

DRUGS (2)
  1. EVENITY [Suspect]
     Active Substance: ROMOSOZUMAB-AQQG
     Indication: Product used for unknown indication
     Dosage: UNK
     Route: 065
     Dates: end: 2022
  2. EVENITY [Suspect]
     Active Substance: ROMOSOZUMAB-AQQG
     Dosage: UNK
     Route: 065
     Dates: start: 20231218

REACTIONS (2)
  - Rheumatoid arthritis [Recovering/Resolving]
  - Off label use [Unknown]

NARRATIVE: CASE EVENT DATE: 20231218
